FAERS Safety Report 8709764 (Version 2)
Quarter: 2012Q4

REPORT INFORMATION
  Report Type: 
  Country: JP (occurrence: JP)
  Receive Date: 20120806
  Receipt Date: 20120921
  Transmission Date: 20130627
  Serious: Yes (Death)
  Sender: FDA-Public Use
  Company Number: JP-AMGEN-JPNCT2012048743

PATIENT
  Age: 83 Year
  Sex: Female
  Weight: 60 kg

DRUGS (22)
  1. DARBEPOETIN ALFA [Suspect]
     Indication: NEPHROGENIC ANAEMIA
     Dosage: 60 mug, UNK
     Route: 058
     Dates: start: 20110811, end: 20110811
  2. ISCOTIN [Concomitant]
     Dosage: UNK
     Route: 048
  3. APTECIN [Concomitant]
     Dosage: UNK
     Route: 048
  4. PYDOXAL [Concomitant]
     Dosage: UNK
     Route: 048
  5. MUCOSTA [Concomitant]
     Dosage: UNK
     Route: 048
  6. TAKEPRON [Concomitant]
     Dosage: UNK
     Route: 048
  7. BAYASPIRIN [Concomitant]
     Dosage: UNK
     Route: 048
  8. AMLODIN [Concomitant]
     Dosage: UNK
     Route: 048
  9. DIOVAN [Concomitant]
     Dosage: UNK
     Route: 048
  10. PROCYLIN [Concomitant]
     Dosage: UNK
     Route: 048
  11. INFREE S [Concomitant]
     Dosage: UNK
     Route: 048
  12. GASMOTIN [Concomitant]
     Dosage: UNK
     Route: 048
  13. MUCODYNE [Concomitant]
     Dosage: UNK
     Route: 048
  14. RESPLEN [Concomitant]
     Dosage: UNK
     Route: 048
  15. ADALAT CR [Concomitant]
     Dosage: UNK
     Route: 048
  16. MAGLAX [Concomitant]
     Dosage: UNK
     Route: 048
  17. CATAPRES [Concomitant]
     Dosage: UNK
     Route: 048
  18. MINIPRESS [Concomitant]
     Dosage: UNK
     Route: 048
  19. PURSENNID [Concomitant]
     Dosage: UNK
     Route: 048
  20. LASIX [Concomitant]
     Dosage: UNK
     Route: 048
  21. FLUITRAN [Concomitant]
     Dosage: UNK
     Route: 048
  22. HUMULIN N [Concomitant]
     Dosage: UNK
     Route: 065

REACTIONS (1)
  - Acute myocardial infarction [Fatal]
